FAERS Safety Report 4568197-0 (Version None)
Quarter: 2005Q1

REPORT INFORMATION
  Report Type: 
  Country: None (occurrence: None)
  Receive Date: 20050128
  Receipt Date: 20050113
  Transmission Date: 20050727
  Serious: Yes (Disabling)
  Sender: FDA-Public Use
  Company Number: 9788

PATIENT
  Age: 63 Year
  Sex: Female

DRUGS (5)
  1. AMIODARONE HCL [Suspect]
     Indication: ATRIAL FIBRILLATION
     Dosage: 100 MG, FREQ, PO
     Route: 048
     Dates: start: 20000301, end: 20041101
  2. LACIDIPINE [Concomitant]
  3. VALSARTAN [Concomitant]
  4. ISOSORBIDE [Concomitant]
  5. SIMVASTATIN [Concomitant]

REACTIONS (5)
  - AGITATION [None]
  - HYPERHIDROSIS [None]
  - HYPERTHYROIDISM [None]
  - IMPAIRED WORK ABILITY [None]
  - TREMOR [None]
